FAERS Safety Report 6550789-0 (Version None)
Quarter: 2010Q1

REPORT INFORMATION
  Report Type: 
  Country: None (occurrence: None)
  Receive Date: 20100125
  Receipt Date: 20100120
  Transmission Date: 20100710
  Serious: Yes (Death)
  Sender: FDA-Public Use
  Company Number: PHEH2010US00523

PATIENT
  Sex: Male

DRUGS (11)
  1. SANDIMMUNE [Suspect]
     Indication: RENAL TRANSPLANT
     Dosage: 100 MG, BID
     Route: 048
     Dates: start: 19880101
  2. PREDNISONE [Concomitant]
     Indication: RENAL TRANSPLANT
     Dosage: 10 MG, QD
     Dates: start: 19880101
  3. MICARDIS [Concomitant]
     Dosage: 80 MG, QD
  4. DOXAZOSIN MESYLATE [Concomitant]
     Dosage: 4 MG, QHS
  5. FOLIC ACID [Concomitant]
     Dosage: 1 MG, UNK
  6. TEKTURNA HCT [Concomitant]
     Dosage: 150/12.5 MG DAILY
  7. FUROSEMIDE [Concomitant]
     Dosage: 40 MG DAILY
  8. WARFARIN [Concomitant]
     Dosage: 7.5 MG DAILY
  9. POTASSIUM CHLORIDE [Concomitant]
     Dosage: 20 MEQ DAILY
  10. INSULIN [Concomitant]
  11. PRAVASTATIN [Concomitant]
     Dosage: 40 MG DAILY

REACTIONS (1)
  - CARDIAC DISORDER [None]
